FAERS Safety Report 7590774 (Version 38)
Quarter: 2015Q3

REPORT INFORMATION
  Report Type: Report from Study
  Country: CA (occurrence: CA)
  Receive Date: 20100917
  Receipt Date: 20150813
  Transmission Date: 20151125
  Serious: Yes (Hospitalization, Other)
  Sender: FDA-Public Use
  Company Number: PHHY2010CA60017

PATIENT
  Age: 60 Year
  Sex: Female

DRUGS (8)
  1. SUTENT [Concomitant]
     Active Substance: SUNITINIB MALATE
     Indication: PRODUCT USED FOR UNKNOWN INDICATION
     Dosage: 37.5 MG, QD
     Route: 048
  2. SANDOSTATIN LAR DEPOT [Suspect]
     Active Substance: OCTREOTIDE ACETATE
     Dosage: 30 MG, QMO
     Route: 030
  3. SANDOSTATIN LAR DEPOT [Suspect]
     Active Substance: OCTREOTIDE ACETATE
     Indication: CARCINOID TUMOUR
     Dosage: 30 MG, QMO
     Route: 030
     Dates: start: 20050307
  4. SANDOSTATIN LAR DEPOT [Suspect]
     Active Substance: OCTREOTIDE ACETATE
     Dosage: 30 MG, EVERY 3 WEEKS
     Route: 030
     Dates: start: 20050703
  5. FRAGMIN [Suspect]
     Active Substance: DALTEPARIN SODIUM
     Indication: PRODUCT USED FOR UNKNOWN INDICATION
     Dosage: UNK
     Route: 058
  6. COUMADIN [Concomitant]
     Active Substance: WARFARIN SODIUM
     Indication: PRODUCT USED FOR UNKNOWN INDICATION
     Dosage: UNK
     Route: 065
  7. SANDOSTATIN LAR DEPOT [Suspect]
     Active Substance: OCTREOTIDE ACETATE
     Dosage: 30 MG, EVERY 3 WEEKS
     Route: 030
  8. LOVENOX [Concomitant]
     Active Substance: ENOXAPARIN SODIUM
     Indication: PRODUCT USED FOR UNKNOWN INDICATION
     Dosage: UNK
     Route: 058

REACTIONS (40)
  - Epistaxis [Unknown]
  - Hypoglycaemia [Unknown]
  - Hepatic cancer [Unknown]
  - Abdominal pain [Unknown]
  - Pancreatic carcinoma [Unknown]
  - Pain in extremity [Not Recovered/Not Resolved]
  - Swelling [Recovering/Resolving]
  - Joint swelling [Unknown]
  - Dizziness [Unknown]
  - Muscular weakness [Unknown]
  - Menorrhagia [Unknown]
  - Groin pain [Unknown]
  - Blood glucose increased [Unknown]
  - Abdominal pain upper [Unknown]
  - Oedema peripheral [Unknown]
  - Asthenia [Unknown]
  - Hepatic enzyme increased [Unknown]
  - Fall [Unknown]
  - Exostosis [Unknown]
  - Peripheral swelling [Unknown]
  - Hepatic infection bacterial [Unknown]
  - Appendicitis perforated [Unknown]
  - Second primary malignancy [Unknown]
  - Pulmonary embolism [Unknown]
  - Abasia [Unknown]
  - Swelling face [Unknown]
  - Diarrhoea [Unknown]
  - Headache [Unknown]
  - Blood pressure increased [Unknown]
  - Nasopharyngitis [Unknown]
  - Balance disorder [Unknown]
  - Vaginal haemorrhage [Recovering/Resolving]
  - Pituitary tumour [Unknown]
  - Pain [Unknown]
  - Gait disturbance [Unknown]
  - Face oedema [Not Recovered/Not Resolved]
  - Movement disorder [Unknown]
  - Arthralgia [Recovering/Resolving]
  - Nausea [Unknown]
  - Fatigue [Unknown]

NARRATIVE: CASE EVENT DATE: 20130916
